APPROVED DRUG PRODUCT: PAMIDRONATE DISODIUM
Active Ingredient: PAMIDRONATE DISODIUM
Strength: 60MG/10ML (6MG/ML)
Dosage Form/Route: INJECTABLE;INJECTION
Application: A075841 | Product #002 | TE Code: AP
Applicant: HOSPIRA INC
Approved: Jun 27, 2002 | RLD: No | RS: Yes | Type: RX